FAERS Safety Report 16239979 (Version 8)
Quarter: 2020Q3

REPORT INFORMATION
  Report Type: Spontaneous
  Country: US (occurrence: US)
  Receive Date: 20190425
  Receipt Date: 20200916
  Transmission Date: 20201102
  Serious: Yes (Hospitalization, Other)
  Sender: FDA-Public Use
  Company Number: US-PFIZER INC-2019169826

PATIENT
  Age: 64 Year
  Sex: Male
  Weight: 104 kg

DRUGS (6)
  1. LISINOPRIL. [Concomitant]
     Active Substance: LISINOPRIL
     Dosage: UNK
  2. LYRICA [Suspect]
     Active Substance: PREGABALIN
     Dosage: 300 MG, (150 MG BY DOUBLING HIS DOSAGE)
  3. LYRICA [Suspect]
     Active Substance: PREGABALIN
     Indication: NEUROPATHY PERIPHERAL
     Dosage: 300 MG, DAILY (150MG AM, 150MG PM, DAILY)
     Route: 048
  4. CIPROPAN [Concomitant]
     Dosage: UNK
  5. ATORVASTATIN [Concomitant]
     Active Substance: ATORVASTATIN
     Dosage: UNK
  6. LYRICA [Suspect]
     Active Substance: PREGABALIN
     Dosage: 225 MG, DAILY (150MG AM, 75MG PM, DAILY)
     Route: 048
     Dates: start: 201702

REACTIONS (7)
  - Tremor [Unknown]
  - Gait disturbance [Recovering/Resolving]
  - Carpal tunnel syndrome [Recovered/Resolved]
  - Pain in extremity [Recovering/Resolving]
  - Emotional disorder [Unknown]
  - Hypoacusis [Unknown]
  - Pain [Unknown]
